FAERS Safety Report 8219003-4 (Version None)
Quarter: 2012Q1

REPORT INFORMATION
  Report Type: 
  Country: None (occurrence: None)
  Receive Date: 20120319
  Receipt Date: 20120309
  Transmission Date: 20120608
  Serious: Yes (Hospitalization, Disabling, Other)
  Sender: FDA-Public Use
  Company Number: US-MERCK-1112USA00463

PATIENT
  Age: 65 Year
  Sex: Female
  Weight: 95 kg

DRUGS (4)
  1. FOSAMAX [Suspect]
     Route: 048
     Dates: start: 20080201, end: 20090201
  2. BONIVA [Suspect]
     Indication: POSTMENOPAUSE
     Route: 048
     Dates: start: 20090201, end: 20100301
  3. FOSAMAX [Suspect]
     Indication: POSTMENOPAUSE
     Route: 048
     Dates: start: 20030403, end: 20080201
  4. ALENDRONATE SODIUM [Suspect]
     Indication: POSTMENOPAUSE
     Route: 048
     Dates: start: 20080101, end: 20080101

REACTIONS (42)
  - FOOT FRACTURE [None]
  - SPONDYLOLISTHESIS [None]
  - HEPATIC STEATOSIS [None]
  - OSTEOARTHRITIS [None]
  - ATROPHY [None]
  - FOOT DEFORMITY [None]
  - STRESS URINARY INCONTINENCE [None]
  - ANKLE FRACTURE [None]
  - BURSITIS [None]
  - GAIT DISTURBANCE [None]
  - LUMBAR SPINAL STENOSIS [None]
  - HYPERLIPIDAEMIA [None]
  - CONSTIPATION [None]
  - METATARSALGIA [None]
  - OEDEMA PERIPHERAL [None]
  - LIMB DISCOMFORT [None]
  - DECREASED ACTIVITY [None]
  - STRESS FRACTURE [None]
  - FEMUR FRACTURE [None]
  - INTERVERTEBRAL DISC PROTRUSION [None]
  - NEUROMA [None]
  - HYPERCHOLESTEROLAEMIA [None]
  - FALL [None]
  - PERIARTHRITIS [None]
  - FRACTURE NONUNION [None]
  - RESTLESS LEGS SYNDROME [None]
  - NEUROLOGICAL SYMPTOM [None]
  - LARYNGEAL NEOPLASM [None]
  - IMPAIRED HEALING [None]
  - HYPERKERATOSIS [None]
  - TIBIA FRACTURE [None]
  - EXOSTOSIS [None]
  - RENAL CYST [None]
  - ARTHROPATHY [None]
  - BREAST INFECTION [None]
  - FIBULA FRACTURE [None]
  - ARTHRALGIA [None]
  - GASTROOESOPHAGEAL REFLUX DISEASE [None]
  - HYPERTONIC BLADDER [None]
  - ARTHRITIS [None]
  - LOW TURNOVER OSTEOPATHY [None]
  - BUNION [None]
